FAERS Safety Report 4928695-4 (Version None)
Quarter: 2006Q1

REPORT INFORMATION
  Report Type: 
  Country: None (occurrence: None)
  Receive Date: 20060301
  Receipt Date: 20060217
  Transmission Date: 20060701
  Serious: Yes (Other)
  Sender: FDA-Public Use
  Company Number: US-AMGEN-US169687

PATIENT
  Sex: Female
  Weight: 44 kg

DRUGS (4)
  1. PROCRIT [Suspect]
     Indication: MYELODYSPLASTIC SYNDROME
     Route: 058
     Dates: start: 20060209
  2. VITAMIN B-12 [Concomitant]
  3. ATENOLOL [Concomitant]
     Route: 048
  4. ESTROGEN NOS [Concomitant]

REACTIONS (4)
  - ABDOMINAL PAIN [None]
  - INFLUENZA LIKE ILLNESS [None]
  - PALPITATIONS [None]
  - TRANSIENT ISCHAEMIC ATTACK [None]
